FAERS Safety Report 12536510 (Version 3)
Quarter: 2019Q4

REPORT INFORMATION
  Report Type: Spontaneous
  Country: US (occurrence: US)
  Receive Date: 20160707
  Receipt Date: 20191213
  Transmission Date: 20200122
  Serious: No
  Sender: FDA-Public Use
  Company Number: US-PFIZER INC-2016329602

PATIENT
  Age: 60 Year
  Sex: Female
  Weight: 97.52 kg

DRUGS (3)
  1. BOSULIF [Suspect]
     Active Substance: BOSUTINIB MONOHYDRATE
     Dosage: 200 MG, UNK
  2. BOSULIF [Suspect]
     Active Substance: BOSUTINIB MONOHYDRATE
     Dosage: 100 MG, DAILY
     Route: 048
  3. BOSULIF [Suspect]
     Active Substance: BOSUTINIB MONOHYDRATE
     Indication: CHRONIC MYELOID LEUKAEMIA
     Dosage: 500 MG, DAILY
     Route: 048
     Dates: start: 20160625

REACTIONS (6)
  - Diarrhoea [Unknown]
  - Lip discolouration [Unknown]
  - Headache [Unknown]
  - Fatigue [Unknown]
  - Rash papular [Unknown]
  - Wrong strength [Unknown]

NARRATIVE: CASE EVENT DATE: 20160701
